FAERS Safety Report 8252337-6 (Version None)
Quarter: 2012Q2

REPORT INFORMATION
  Report Type: 
  Country: None (occurrence: None)
  Receive Date: 20120402
  Receipt Date: 20110520
  Transmission Date: 20120825
  Serious: No
  Sender: FDA-Public Use
  Company Number: US-ABBOTT-11P-163-0804598-00

PATIENT
  Sex: Male
  Weight: 97.727 kg

DRUGS (6)
  1. LISINOPRIL [Concomitant]
     Indication: BLOOD PRESSURE
     Dosage: DAILY DOSE:  UNKNOWN
     Route: 065
  2. HYDROCHLOROTHIAZIDE [Concomitant]
     Indication: BLOOD PRESSURE
     Dosage: DAILY DOSE:  UNKNOWN
     Route: 065
  3. AMLODIPINE [Concomitant]
     Indication: BLOOD PRESSURE
     Dosage: DAILY DOSE: 5 MILLIGRAM(S)
     Route: 065
  4. TESTOSTERONE [Suspect]
     Indication: BLOOD TESTOSTERONE DECREASED
     Dosage: DAILY DOSE: 5 GRAM(S),
     Route: 062
     Dates: start: 20100101
  5. TESTOSTERONE [Suspect]
     Dosage: DAILY DOSE: 5 GRAM(S)
     Route: 062
  6. TESTOSTERONE [Suspect]
     Dosage: DAILY DOSE: 2.5 GRAM(S)
     Route: 062
     Dates: start: 20110501

REACTIONS (1)
  - PROSTATIC SPECIFIC ANTIGEN INCREASED [None]
